FAERS Safety Report 15557919 (Version 2)
Quarter: 2018Q4

REPORT INFORMATION
  Report Type: Report from Study
  Country: AU (occurrence: AU)
  Receive Date: 20181027
  Receipt Date: 20181102
  Transmission Date: 20190205
  Serious: No
  Sender: FDA-Public Use
  Company Number: AU-009507513-1810AUS008965

PATIENT
  Sex: Male
  Weight: 75 kg

DRUGS (2)
  1. PEMBROLIZUMAB. [Suspect]
     Active Substance: PEMBROLIZUMAB
     Dosage: 150 MILLIGRAM, UNK (STRENGTH: 100MG/4ML SOLUTION)
     Route: 042
  2. PEMBROLIZUMAB. [Suspect]
     Active Substance: PEMBROLIZUMAB
     Dosage: 200 MG (STRENGTH: 100MG/ 4 ML SOLUTION)
     Route: 042

REACTIONS (1)
  - Weight decreased [Unknown]
